FAERS Safety Report 9189687 (Version 2)
Quarter: 2013Q2

REPORT INFORMATION
  Report Type: Spontaneous
  Country: US (occurrence: US)
  Receive Date: 20130326
  Receipt Date: 20130503
  Transmission Date: 20140414
  Serious: Yes (Hospitalization)
  Sender: FDA-Public Use
  Company Number: US-BAYER-2013-037420

PATIENT
  Age: 49 Year
  Sex: Female

DRUGS (30)
  1. YAZ [Suspect]
     Indication: ACNE
  2. YASMIN [Suspect]
     Indication: ACNE
  3. OCELLA [Suspect]
     Indication: ACNE
  4. DOCUSATE SODIUM [Concomitant]
     Dosage: UNK
     Dates: start: 20090813
  5. PANTOPRAZOLE [Concomitant]
     Dosage: UNK
     Dates: start: 20090814
  6. LORATADINE [Concomitant]
     Dosage: UNK
     Dates: start: 20090814
  7. CALCIUM [Concomitant]
     Dosage: UNK
     Dates: start: 20090811
  8. FISH OIL [Concomitant]
     Dosage: UNK
     Dates: start: 20090811
  9. MIDAZOLAM [Concomitant]
     Dosage: UNK
     Dates: start: 20090811
  10. ONDANSETRON [Concomitant]
     Dosage: UNK
     Dates: start: 20090811
  11. PROPOFOL [Concomitant]
     Dosage: UNK
     Dates: start: 20090811
  12. EPHEDRINE [Concomitant]
     Dosage: UNK
     Dates: start: 20090811
  13. CEFAZOLIN [Concomitant]
     Dosage: UNK
     Dates: start: 20090811
  14. CEFAZOLIN [Concomitant]
     Dosage: UNK
     Dates: start: 20090812
  15. BUPIVACAINE [Concomitant]
     Dosage: UNK
     Dates: start: 20090811
  16. SENNA [Concomitant]
     Dosage: UNK
     Dates: start: 20090811
  17. SENNA [Concomitant]
     Dosage: UNK
     Dates: start: 20090812
  18. OMEPRAZOLE [Concomitant]
     Dosage: UNK
     Dates: start: 20090812
  19. GRANISETRON [Concomitant]
     Dosage: UNK
     Dates: start: 20090811
  20. GRANISETRON [Concomitant]
     Dosage: UNK
     Dates: start: 20090812
  21. DROPERIDOL [Concomitant]
     Dosage: UNK
     Dates: start: 20090811
  22. DROPERIDOL [Concomitant]
     Dosage: UNK
     Dates: start: 20090812
  23. DROPERIDOL [Concomitant]
     Dosage: UNK
     Dates: start: 20090813
  24. ACETAMINOPHEN [Concomitant]
  25. INDOMETHACIN [Concomitant]
  26. TYLENOL [Concomitant]
  27. ASPIRIN [Concomitant]
  28. LOPRESSOR [Concomitant]
  29. NITROGLYCERIN [Concomitant]
  30. K-DUR [Concomitant]

REACTIONS (4)
  - Pulmonary embolism [Recovered/Resolved]
  - Injury [None]
  - Pain [None]
  - Pain [None]
